FAERS Safety Report 5684713-X (Version None)
Quarter: 2008Q1

REPORT INFORMATION
  Report Type: 
  Country: None (occurrence: None)
  Receive Date: 20080328
  Receipt Date: 20070822
  Transmission Date: 20080703
  Serious: Yes (Life-Threatening, Other)
  Sender: FDA-Public Use
  Company Number: US-BRISTOL-MYERS SQUIBB COMPANY-13856331

PATIENT
  Age: 66 Year
  Sex: Male
  Weight: 74 kg

DRUGS (5)
  1. ERBITUX [Suspect]
     Indication: COLON CANCER METASTATIC
     Dosage: 8 MINUTES@200 ML/HR
     Route: 042
     Dates: start: 20070724, end: 20070724
  2. BENADRYL [Concomitant]
     Indication: PREMEDICATION
     Route: 042
  3. DEXAMETHASONE TAB [Concomitant]
     Indication: PREMEDICATION
     Route: 042
  4. CIMETIDINE [Concomitant]
     Indication: PREMEDICATION
     Route: 042
  5. KYTRIL [Concomitant]
     Indication: PREMEDICATION
     Route: 042

REACTIONS (5)
  - HYPERSENSITIVITY [None]
  - HYPOTENSION [None]
  - INFUSION RELATED REACTION [None]
  - LOSS OF CONSCIOUSNESS [None]
  - TACHYCARDIA [None]
